FAERS Safety Report 11311884 (Version 1)
Quarter: 2015Q3

REPORT INFORMATION
  Report Type: Spontaneous
  Country: RU (occurrence: RU)
  Receive Date: 20150727
  Receipt Date: 20150727
  Transmission Date: 20151125
  Serious: Yes (Other)
  Sender: FDA-Public Use
  Company Number: RU-TEVA-579682ISR

PATIENT
  Age: 57 Year
  Sex: Male

DRUGS (2)
  1. BRULAMYCIN /00304201/ [Suspect]
     Active Substance: TOBRAMYCIN
     Route: 042
  2. SULCEF [Suspect]
     Active Substance: CEFOPERAZONE\SULBACTAM
     Route: 042

REACTIONS (2)
  - Toxic skin eruption [Recovering/Resolving]
  - Rash maculo-papular [Recovering/Resolving]
